FAERS Safety Report 7574499-6 (Version None)
Quarter: 2011Q2

REPORT INFORMATION
  Report Type: 
  Country: None (occurrence: None)
  Receive Date: 20110627
  Receipt Date: 20110621
  Transmission Date: 20111010
  Serious: Yes (Death)
  Sender: FDA-Public Use
  Company Number: US-PFIZER INC-2008153703

PATIENT
  Age: 54 Year
  Sex: Male

DRUGS (9)
  1. GABAPENTIN [Suspect]
     Dosage: UNK
     Route: 048
     Dates: end: 20070101
  2. POTASSIUM CHLORIDE [Suspect]
     Dosage: UNK
     Route: 048
     Dates: end: 20070101
  3. FLUOXETINE [Suspect]
     Dosage: UNK
     Route: 048
     Dates: end: 20070101
  4. FUROSEMIDE [Suspect]
     Dosage: UNK
     Route: 048
     Dates: end: 20070101
  5. GLIMEPIRIDE [Suspect]
     Dosage: UNK
     Route: 048
     Dates: end: 20070101
  6. TRAZODONE HCL [Suspect]
     Dosage: UNK
     Route: 048
     Dates: end: 20070101
  7. ALPRAZOLAM [Suspect]
     Dosage: UNK
     Route: 048
     Dates: end: 20070101
  8. EFFEXOR XR [Suspect]
     Dosage: UNK
     Route: 048
     Dates: end: 20070101
  9. METFORMIN HCL [Suspect]
     Dosage: UNK
     Route: 048
     Dates: end: 20070101

REACTIONS (1)
  - COMPLETED SUICIDE [None]
